FAERS Safety Report 10743485 (Version 1)
Quarter: 2015Q1

REPORT INFORMATION
  Report Type: Spontaneous
  Country: US (occurrence: US)
  Receive Date: 20150128
  Receipt Date: 20150128
  Transmission Date: 20150721
  Serious: Yes (Other)
  Sender: FDA-Public Use
  Company Number: PHHY2015US007445

PATIENT

DRUGS (6)
  1. AMIODARONE [Suspect]
     Active Substance: AMIODARONE
     Route: 041
  2. AMIODARONE [Suspect]
     Active Substance: AMIODARONE
     Indication: TACHYCARDIA FOETAL
     Dosage: 600 MG, Q6H
     Route: 064
  3. AMIODARONE [Suspect]
     Active Substance: AMIODARONE
     Dosage: 300 MG, Q12H
     Route: 064
  4. AMIODARONE [Suspect]
     Active Substance: AMIODARONE
     Dosage: 8 MG, BID
     Route: 048
  5. AMIODARONE [Suspect]
     Active Substance: AMIODARONE
     Dosage: 300 MG, Q6H
     Route: 064
  6. AMIODARONE [Suspect]
     Active Substance: AMIODARONE
     Dosage: 5 MG, TID
     Route: 064

REACTIONS (3)
  - Foetal exposure during pregnancy [Unknown]
  - Hypothyroidism [Recovered/Resolved]
  - Premature baby [Unknown]
